FAERS Safety Report 9819732 (Version 1)
Quarter: 2014Q1

REPORT INFORMATION
  Report Type: Spontaneous
  Country: VN (occurrence: VN)
  Receive Date: 20140116
  Receipt Date: 20140116
  Transmission Date: 20141002
  Serious: Yes (Other)
  Sender: FDA-Public Use
  Company Number: VN-ROCHE-1332817

PATIENT
  Sex: 0

DRUGS (1)
  1. PEGASYS [Suspect]
     Indication: CHRONIC HEPATITIS B
     Route: 058

REACTIONS (3)
  - Alopecia [Unknown]
  - Fatigue [Unknown]
  - Hepatitis B [Unknown]
